FAERS Safety Report 6659648-6 (Version None)
Quarter: 2010Q1

REPORT INFORMATION
  Report Type: 
  Country: None (occurrence: None)
  Receive Date: 20100322
  Receipt Date: 20090618
  Transmission Date: 20100710
  Serious: No
  Sender: FDA-Public Use
  Company Number: 2007US-09728

PATIENT
  Age: 17 Year
  Sex: Female

DRUGS (1)
  1. ISOTRETINOIN [Suspect]
     Indication: ACNE
     Dosage: 40 MG, ORAL
     Route: 048
     Dates: start: 20070401, end: 20070719

REACTIONS (2)
  - ACNE [None]
  - DRUG INEFFECTIVE [None]
